FAERS Safety Report 15905900 (Version 1)
Quarter: 2019Q1

REPORT INFORMATION
  Report Type: Spontaneous
  Country: DE (occurrence: DE)
  Receive Date: 20190204
  Receipt Date: 20190204
  Transmission Date: 20190417
  Serious: Yes (Other)
  Sender: FDA-Public Use
  Company Number: IND-DE-009507513-1901DEU012266

PATIENT
  Age: 47 Year
  Sex: Female

DRUGS (1)
  1. ARCOXIA [Suspect]
     Active Substance: ETORICOXIB
     Dosage: DAILY DOSE: 90 MG MILLGRAM(S) EVERY TOTAL
     Dates: start: 20190111, end: 20190111

REACTIONS (3)
  - Dyspnoea [Recovering/Resolving]
  - Rash generalised [Recovering/Resolving]
  - Hypersensitivity [Recovering/Resolving]

NARRATIVE: CASE EVENT DATE: 20190111
